FAERS Safety Report 11872487 (Version 3)
Quarter: 2016Q1

REPORT INFORMATION
  Report Type: Report from Study
  Country: TR (occurrence: TR)
  Receive Date: 20151228
  Receipt Date: 20160331
  Transmission Date: 20160526
  Serious: Yes (Hospitalization)
  Sender: FDA-Public Use
  Company Number: TR-ABBVIE-15K-161-1527105-00

PATIENT
  Age: 41 Year
  Sex: Female
  Weight: 113 kg

DRUGS (1)
  1. HUMIRA [Suspect]
     Active Substance: ADALIMUMAB
     Indication: ANKYLOSING SPONDYLITIS
     Route: 058
     Dates: start: 20150917, end: 20151112

REACTIONS (2)
  - Spinal pain [Recovering/Resolving]
  - Bone tuberculosis [Recovering/Resolving]

NARRATIVE: CASE EVENT DATE: 201510
